FAERS Safety Report 5509792-1 (Version None)
Quarter: 2007Q4

REPORT INFORMATION
  Report Type: 
  Country: None (occurrence: None)
  Receive Date: 20071107
  Receipt Date: 20071107
  Transmission Date: 20080405
  Serious: Yes (Hospitalization)
  Sender: FDA-Public Use
  Company Number: None

PATIENT
  Age: 81 Year
  Sex: Male

DRUGS (2)
  1. AMLODIPINE [Suspect]
     Indication: ANGINA PECTORIS
     Dosage: 10MG EVERY DAY PO
     Route: 048
     Dates: start: 20070710, end: 20070712
  2. METOPROLOL TARTRATE [Suspect]
     Dosage: 25MG BID PO
     Route: 048
     Dates: start: 20070710, end: 20070712

REACTIONS (2)
  - DIZZINESS [None]
  - HYPOTENSION [None]
